FAERS Safety Report 12775430 (Version 1)
Quarter: 2016Q3

REPORT INFORMATION
  Report Type: Spontaneous
  Country: GB (occurrence: GB)
  Receive Date: 20160923
  Receipt Date: 20160923
  Transmission Date: 20161109
  Serious: Yes (Other)
  Sender: FDA-Public Use
  Company Number: GB-PFIZER INC-2016437114

PATIENT
  Age: 43 Year
  Sex: Female

DRUGS (1)
  1. LUSTRAL [Suspect]
     Active Substance: SERTRALINE HYDROCHLORIDE
     Indication: DEPRESSION
     Dosage: UNK

REACTIONS (9)
  - Headache [Unknown]
  - Impaired driving ability [Unknown]
  - Paraesthesia [Unknown]
  - Confusional state [Unknown]
  - Memory impairment [Unknown]
  - Impaired work ability [Unknown]
  - Drug ineffective [Unknown]
  - Nausea [Unknown]
  - Disorientation [Unknown]
